FAERS Safety Report 11615367 (Version 2)
Quarter: 2016Q1

REPORT INFORMATION
  Report Type: Report from Study
  Country: TW (occurrence: TW)
  Receive Date: 20151009
  Receipt Date: 20160111
  Transmission Date: 20160525
  Serious: No
  Sender: FDA-Public Use
  Company Number: PHHY2015TW121846

PATIENT
  Age: 61 Year
  Sex: Female

DRUGS (5)
  1. HYDROCORTISONE. [Concomitant]
     Active Substance: HYDROCORTISONE
     Indication: PROPHYLAXIS
     Dosage: 100 MG, UNK
     Route: 042
     Dates: start: 20130727, end: 20130727
  2. FLUMETHOLON [Concomitant]
     Active Substance: FLUOROMETHOLONE
     Indication: VITREOUS HAEMORRHAGE
     Dosage: UNK
     Route: 047
     Dates: start: 20130408
  3. CHLORPHENAMINE [Concomitant]
     Active Substance: CHLORPHENIRAMINE MALEATE
     Indication: PROPHYLAXIS
     Dosage: 5 MG, UNK
     Route: 042
     Dates: start: 20130727, end: 20130727
  4. TASIGNA [Suspect]
     Active Substance: NILOTINIB
     Indication: CHRONIC MYELOID LEUKAEMIA
     Dosage: 300 OT, UNK
     Route: 048
     Dates: start: 20130703, end: 20130716
  5. GENTAMYCEN [Concomitant]
     Active Substance: GENTAMICIN SULFATE
     Indication: VITREOUS HAEMORRHAGE
     Dosage: UNK
     Route: 047
     Dates: start: 20130408

REACTIONS (1)
  - Upper respiratory tract infection [Recovered/Resolved]

NARRATIVE: CASE EVENT DATE: 20130727
